FAERS Safety Report 10258426 (Version 3)
Quarter: 2014Q3

REPORT INFORMATION
  Report Type: Spontaneous
  Country: US (occurrence: None)
  Receive Date: 20140623
  Receipt Date: 20140827
  Transmission Date: 20150326
  Serious: Yes (Hospitalization)
  Sender: FDA-Public Use
  Company Number: US-001058

PATIENT
  Sex: Female

DRUGS (6)
  1. CALCIUM [Concomitant]
     Active Substance: CALCIUM
  2. MAGNESIUM [Concomitant]
     Active Substance: MAGNESIUM
  3. GATTEX [Suspect]
     Active Substance: TEDUGLUTIDE\WATER
     Indication: SHORT-BOWEL SYNDROME
     Route: 058
  4. SODIUM [Concomitant]
     Active Substance: SODIUM
  5. SOLUTIONS FOR PARENTERAL NUTRITION [Concomitant]
     Active Substance: AMINO ACIDS\DEXTROSE\ELECTROLYTES NOS
  6. POTASSIUM [Concomitant]
     Active Substance: POTASSIUM

REACTIONS (2)
  - Peripheral swelling [None]
  - Device related infection [None]
